FAERS Safety Report 5353883-5 (Version None)
Quarter: 2007Q2

REPORT INFORMATION
  Report Type: 
  Country: None (occurrence: None)
  Receive Date: 20070521
  Receipt Date: 20070129
  Transmission Date: 20071010
  Serious: No
  Sender: FDA-Public Use
  Company Number: WAES 0701USA04949

PATIENT
  Age: 73 Year
  Sex: Male
  Weight: 119.296 kg

DRUGS (14)
  1. JANUVIA [Suspect]
     Indication: DIABETES MELLITUS
     Dosage: SEE IMAGE
     Route: 048
     Dates: start: 20070122
  2. CARTIA XT [Concomitant]
  3. PLAVIX [Concomitant]
  4. [THERAPY UNSPECIFIED] [Concomitant]
  5. ALLOPURINOL [Concomitant]
  6. ASPIRIN [Concomitant]
  7. ATENOLOL [Concomitant]
  8. FOLIC ACID [Concomitant]
  9. GABAPENTIN [Concomitant]
  10. GLYBURIDE [Concomitant]
  11. HYDROCHLOROTHIAZIDE [Concomitant]
  12. LISINOPRIL [Concomitant]
  13. METFORMIN HCL [Concomitant]
  14. SIMVASTATIN [Concomitant]

REACTIONS (2)
  - DRUG DISPENSING ERROR [None]
  - SLEEP DISORDER [None]
